FAERS Safety Report 4639513-6 (Version None)
Quarter: 2005Q2

REPORT INFORMATION
  Report Type: 
  Country: None (occurrence: None)
  Receive Date: 20050419
  Receipt Date: 20050331
  Transmission Date: 20051028
  Serious: Yes (Hospitalization)
  Sender: FDA-Public Use
  Company Number: 2004IM000641

PATIENT
  Age: 66 Year
  Sex: Female
  Weight: 68.9467 kg

DRUGS (14)
  1. INTERFERON GAMMA-1B [Suspect]
     Indication: OVARIAN CANCER
     Dosage: 100 IG, TIW, SUBCUTANEOUS
     Route: 058
     Dates: start: 20040318, end: 20040429
  2. CARBOPLATIN [Suspect]
     Indication: OVARIAN CANCER
     Dosage: 450 MG, Q3W, INTRAVENOUS
     Route: 042
     Dates: start: 20040318, end: 20040429
  3. PACLITAXEL [Suspect]
     Indication: OVARIAN CANCER
     Dosage: 319 MG, Q3W, INTRAVENOUS
     Route: 042
     Dates: start: 20040318, end: 20040429
  4. PROTONIX [Concomitant]
  5. BUSPAR [Concomitant]
  6. COLESTID [Concomitant]
  7. EFFEXOR [Concomitant]
  8. NORVASC [Concomitant]
  9. SYNTHROID [Concomitant]
  10. COMPAZINE [Concomitant]
  11. ZOFRAN [Concomitant]
  12. MOTRIN [Concomitant]
  13. IMODIUM [Concomitant]
  14. LOMOTIL [Concomitant]

REACTIONS (8)
  - ANOREXIA [None]
  - CATHETER RELATED COMPLICATION [None]
  - GASTRITIS [None]
  - HIATUS HERNIA [None]
  - HYPOKALAEMIA [None]
  - ILEUS [None]
  - NEUTROPENIC COLITIS [None]
  - SMALL INTESTINAL OBSTRUCTION [None]
